FAERS Safety Report 17965021 (Version 1)
Quarter: 2020Q2

REPORT INFORMATION
  Report Type: Report from Study
  Country: CO (occurrence: CO)
  Receive Date: 20200630
  Receipt Date: 20200630
  Transmission Date: 20200714
  Serious: Yes (Other)
  Sender: FDA-Public Use
  Company Number: NVSC2019CO008533

PATIENT
  Age: 54 Year
  Sex: Female

DRUGS (4)
  1. AFINITOR [Suspect]
     Active Substance: EVEROLIMUS
     Indication: HER2 NEGATIVE BREAST CANCER
  2. EXEMESTIN [Suspect]
     Active Substance: EXEMESTANE
     Indication: HORMONE RECEPTOR POSITIVE BREAST CANCER
     Route: 065
  3. EXEMESTIN [Suspect]
     Active Substance: EXEMESTANE
     Indication: HER2 NEGATIVE BREAST CANCER
  4. AFINITOR [Suspect]
     Active Substance: EVEROLIMUS
     Indication: HORMONE RECEPTOR POSITIVE BREAST CANCER
     Dosage: 10 MG, QD
     Route: 048
     Dates: start: 20181113

REACTIONS (11)
  - Hepatic failure [Unknown]
  - Oropharyngeal plaque [Unknown]
  - Drug intolerance [Unknown]
  - Pneumonitis [Unknown]
  - Oral pain [Unknown]
  - Liver disorder [Unknown]
  - Headache [Unknown]
  - Hepatitis [Unknown]
  - Musculoskeletal pain [Unknown]
  - Ascites [Unknown]
  - Dyspepsia [Unknown]

NARRATIVE: CASE EVENT DATE: 202001
